FAERS Safety Report 8935479 (Version 1)
Quarter: 2012Q4

REPORT INFORMATION
  Report Type: Spontaneous
  Country: IT (occurrence: None)
  Receive Date: 20121113
  Receipt Date: 20121113
  Transmission Date: 20130627
  Serious: Yes (Other)
  Sender: FDA-Public Use
  Company Number: 2012S1000421

PATIENT
  Age: 91 Year
  Sex: Female

DRUGS (5)
  1. CUBICIN [Suspect]
     Indication: ENDOCARDITIS
     Route: 042
     Dates: start: 20120419, end: 20120425
  2. ATENOLOL [Concomitant]
  3. LASITONE [Concomitant]
  4. TAREG [Concomitant]
  5. PARIET [Concomitant]

REACTIONS (1)
  - Urticaria [None]
